FAERS Safety Report 24550109 (Version 1)
Quarter: 2024Q4

REPORT INFORMATION
  Report Type: Spontaneous
  Country: ES (occurrence: ES)
  Receive Date: 20241025
  Receipt Date: 20241025
  Transmission Date: 20250115
  Serious: Yes (Hospitalization, Other)
  Sender: BRISTOL-MYERS SQUIBB COMPANY
  Company Number: None

PATIENT
  Age: 77 Year
  Sex: Male

DRUGS (6)
  1. OPDIVO [Suspect]
     Active Substance: NIVOLUMAB
     Indication: Renal cancer
     Dosage: 1 VIAL OF 4 ML
     Route: 042
     Dates: start: 20240417, end: 20240620
  2. YERVOY [Suspect]
     Active Substance: IPILIMUMAB
     Indication: Renal cancer
     Dosage: 1 VIAL OF 40 ML
     Route: 042
     Dates: start: 20240417, end: 20240620
  3. OMEPRAZOLE STADA [Concomitant]
     Indication: Product used for unknown indication
     Dosage: 56 CAPSULES
     Route: 048
     Dates: start: 20120507
  4. INNOHEP [Concomitant]
     Active Substance: TINZAPARIN SODIUM
     Indication: Product used for unknown indication
     Dosage: 18,000 UI ANTI-XA/0.9 ML, 30 PRE-FILLED SYRINGES OF 0.9 ML
     Route: 048
     Dates: start: 20240314
  5. DUTASTERIDE\TAMSULOSIN [Concomitant]
     Active Substance: DUTASTERIDE\TAMSULOSIN
     Indication: Product used for unknown indication
     Dosage: 0.5 MG/0.4 MG, 30 CAPSULES
     Route: 048
     Dates: start: 20240410
  6. LORAZEPAM [Concomitant]
     Active Substance: LORAZEPAM
     Indication: Product used for unknown indication
     Dosage: 50 TABLETS
     Route: 048
     Dates: start: 20210824

REACTIONS (3)
  - Hypoparathyroidism [Unknown]
  - Hypophysitis [Unknown]
  - Pneumonitis [Recovered/Resolved]

NARRATIVE: CASE EVENT DATE: 20240715
